FAERS Safety Report 5763112-6 (Version None)
Quarter: 2008Q2

REPORT INFORMATION
  Report Type: 
  Country: None (occurrence: None)
  Receive Date: 20080609
  Receipt Date: 20080603
  Transmission Date: 20081010
  Serious: Yes (Life-Threatening, Hospitalization)
  Sender: FDA-Public Use
  Company Number: GB-PFIZER INC-2008042891

PATIENT
  Age: 83 Year
  Sex: Female
  Weight: 65 kg

DRUGS (9)
  1. SPIRONOLACTONE [Suspect]
     Indication: OEDEMA
     Route: 048
     Dates: start: 20080325, end: 20080414
  2. AMILORIDE HYDROCHLORIDE [Suspect]
     Indication: OEDEMA
     Route: 048
  3. BISOPROLOL FUMARATE [Suspect]
     Route: 048
  4. DIGOXIN [Suspect]
  5. RAMIPRIL [Suspect]
     Indication: CARDIAC FAILURE CONGESTIVE
  6. RAMIPRIL [Suspect]
     Indication: HYPERTENSION
  7. BUMETANIDE [Concomitant]
     Route: 048
  8. GABAPENTIN [Concomitant]
     Route: 048
  9. WARFARIN SODIUM [Concomitant]
     Route: 048

REACTIONS (5)
  - ATRIOVENTRICULAR BLOCK COMPLETE [None]
  - BLOOD POTASSIUM INCREASED [None]
  - BLOOD PRESSURE DECREASED [None]
  - RENAL FAILURE ACUTE [None]
  - SYNCOPE [None]
